FAERS Safety Report 17658974 (Version 2)
Quarter: 2020Q2

REPORT INFORMATION
  Report Type: Report from Study
  Country: None (occurrence: CH)
  Receive Date: 20200413
  Receipt Date: 20200430
  Transmission Date: 20200713
  Serious: Yes (Hospitalization)
  Sender: FDA-Public Use
  Company Number: CH-ABBVIE-20K-151-3355465-00

PATIENT
  Age: 76 Year
  Sex: Male

DRUGS (4)
  1. DUODOPA [Suspect]
     Active Substance: CARBIDOPA\LEVODOPA
     Dosage: MD: 4 ML, CRD: 3 ML/H, CRN: 0 ML/H,ED: 1 ML?16 H THERAPY
     Route: 050
     Dates: start: 20200203, end: 2020
  2. DUODOPA [Suspect]
     Active Substance: CARBIDOPA\LEVODOPA
     Indication: PARKINSON^S DISEASE
     Route: 050
     Dates: start: 20170515, end: 20200131
  3. DUODOPA [Suspect]
     Active Substance: CARBIDOPA\LEVODOPA
     Dosage: MD: 4 ML, CRD: 3 ML/H, CRN: 3 ML/H, ED: 1 ML?24 H THERAPY
     Route: 050
     Dates: start: 20200131, end: 20200203
  4. DUODOPA [Suspect]
     Active Substance: CARBIDOPA\LEVODOPA
     Dosage: MD: 4 ML, CRD: 3 ML/H, CRN : 3 ML/H, ED: 1 ML?24 H THERAPY
     Route: 050
     Dates: start: 2020

REACTIONS (5)
  - Stoma site haemorrhage [Unknown]
  - Device occlusion [Recovered/Resolved]
  - Vomiting [Recovered/Resolved]
  - Upper gastrointestinal haemorrhage [Recovered/Resolved]
  - Wrong technique in device usage process [Unknown]

NARRATIVE: CASE EVENT DATE: 20200405
